FAERS Safety Report 7052601-2 (Version None)
Quarter: 2010Q4

REPORT INFORMATION
  Report Type: 
  Country: None (occurrence: None)
  Receive Date: 20101019
  Receipt Date: 20101007
  Transmission Date: 20110411
  Serious: Yes (Hospitalization)
  Sender: FDA-Public Use
  Company Number: SE-PFIZER INC-2010127371

PATIENT
  Age: 59 Year
  Sex: Female

DRUGS (4)
  1. REVATIO [Suspect]
     Dosage: 20 MG, 3X/DAY
  2. AMBRISENTAN [Suspect]
     Dosage: 10 MG, 1X/DAY
     Dates: start: 20100501
  3. AMBRISENTAN [Suspect]
     Dosage: 5 MG, UNK
  4. LEVOTHYROXINE SODIUM [Concomitant]
     Dosage: UNK

REACTIONS (2)
  - CONSTIPATION [None]
  - OEDEMA [None]
